FAERS Safety Report 9249123 (Version 3)
Quarter: 2013Q2

REPORT INFORMATION
  Report Type: Report from Study
  Country: US (occurrence: US)
  Receive Date: 20130423
  Receipt Date: 20130513
  Transmission Date: 20140414
  Serious: Yes (Death, Hospitalization)
  Sender: FDA-Public Use
  Company Number: US-ACTELION-A-NJ2013-82344

PATIENT
  Age: 67 Year
  Sex: Female

DRUGS (2)
  1. VENTAVIS [Suspect]
     Indication: PORTOPULMONARY HYPERTENSION
     Dosage: UNK
     Route: 055
     Dates: end: 20130506
  2. SILDENAFIL [Concomitant]

REACTIONS (2)
  - Death [Fatal]
  - Dysphagia [Unknown]
